FAERS Safety Report 5041692-6 (Version None)
Quarter: 2006Q2

REPORT INFORMATION
  Report Type: 
  Country: None (occurrence: None)
  Receive Date: 20060630
  Receipt Date: 20060619
  Transmission Date: 20061013
  Serious: Yes (Life-Threatening, Other)
  Sender: FDA-Public Use
  Company Number: 2006077648

PATIENT
  Age: 61 Year
  Sex: Female
  Weight: 73.0291 kg

DRUGS (6)
  1. LIPITOR [Suspect]
     Indication: BLOOD CHOLESTEROL ABNORMAL
     Dosage: 10 MG (10 MG, 1 IN 1D), ORAL
     Route: 048
     Dates: start: 20060124
  2. ASPIRIN [Concomitant]
  3. HYZAAR [Concomitant]
  4. GLUCOVANCE [Concomitant]
  5. ALTACE [Concomitant]
  6. COREG [Concomitant]

REACTIONS (8)
  - ARTERIAL REPAIR [None]
  - ASCITES [None]
  - BREAST SWELLING [None]
  - FLUID RETENTION [None]
  - HYPERTROPHY BREAST [None]
  - VAGINAL DISCHARGE [None]
  - VAGINAL HAEMORRHAGE [None]
  - WEIGHT INCREASED [None]
